FAERS Safety Report 4448974-7 (Version None)
Quarter: 2004Q3

REPORT INFORMATION
  Report Type: 
  Country: None (occurrence: None)
  Receive Date: 20040909
  Receipt Date: 20040820
  Transmission Date: 20050211
  Serious: Yes (Hospitalization)
  Sender: FDA-Public Use
  Company Number: USA040876103

PATIENT
  Age: 80 Year
  Sex: Female
  Weight: 58 kg

DRUGS (12)
  1. FORTEO [Suspect]
     Indication: OSTEOPOROSIS
     Dosage: 20 UG/1 DAY
     Dates: start: 20040727
  2. ZIAC [Concomitant]
  3. COZAAR [Concomitant]
  4. PREVACID [Concomitant]
  5. OSCAL (CALCIUM CARBONATE) [Concomitant]
  6. MULTIVITAMIN [Concomitant]
  7. ASPIRIN [Concomitant]
  8. TRICOR [Concomitant]
  9. METAMUCIL-2 [Concomitant]
  10. MILK OF MAGNESIA TAB [Concomitant]
  11. STOOL SOFTENER (DOCUSATE SODIUM) [Concomitant]
  12. PRAVACHOL [Concomitant]

REACTIONS (7)
  - DISEASE RECURRENCE [None]
  - FEELING ABNORMAL [None]
  - INJECTION SITE BURNING [None]
  - INJECTION SITE HAEMORRHAGE [None]
  - PALPITATIONS [None]
  - PHARMACEUTICAL PRODUCT COMPLAINT [None]
  - VISION BLURRED [None]
